FAERS Safety Report 8367258-8 (Version None)
Quarter: 2012Q2

REPORT INFORMATION
  Report Type: 
  Country: None (occurrence: None)
  Receive Date: 20120517
  Receipt Date: 20120419
  Transmission Date: 20120825
  Serious: Yes (Hospitalization, Other)
  Sender: FDA-Public Use
  Company Number: GB-BRISTOL-MYERS SQUIBB COMPANY-16401739

PATIENT
  Age: 51 Year
  Sex: Female
  Weight: 67 kg

DRUGS (5)
  1. YERVOY [Suspect]
     Indication: METASTATIC MALIGNANT MELANOMA
     Dosage: ALSO 12JAN12 1ST CYCLE ON 06JAN2012,2ND ON 18JAN2012
     Route: 042
     Dates: start: 20111222
  2. LASOPRAZOLE [Concomitant]
     Indication: DYSPEPSIA
     Route: 048
  3. FENTANYL-100 [Concomitant]
     Indication: PAIN
     Route: 061
  4. FORTISIP [Concomitant]
     Route: 048
  5. PROCHLORPERAZINE [Concomitant]
     Indication: MALAISE
     Route: 002

REACTIONS (4)
  - COLITIS [None]
  - METASTASES TO EYE [None]
  - METASTASES TO CENTRAL NERVOUS SYSTEM [None]
  - URINARY TRACT INFECTION [None]
